FAERS Safety Report 7316526-7 (Version None)
Quarter: 2011Q1

REPORT INFORMATION
  Report Type: 
  Country: None (occurrence: None)
  Receive Date: 20110226
  Receipt Date: 20100702
  Transmission Date: 20110831
  Serious: No
  Sender: FDA-Public Use
  Company Number: US-ALLERGAN-1008737US

PATIENT
  Sex: Female

DRUGS (3)
  1. BOTOX COSMETIC [Suspect]
     Dosage: 8 UNITS, SINGLE
     Route: 030
     Dates: start: 20100623, end: 20100623
  2. BOTOX COSMETIC [Suspect]
     Indication: SKIN WRINKLING
     Dosage: 20 UNITS, SINGLE
     Route: 030
     Dates: start: 20100526, end: 20100526
  3. BOTOX COSMETIC [Suspect]
     Dosage: 12 UNITS, SINGLE
     Route: 030
     Dates: start: 20100607, end: 20100607

REACTIONS (1)
  - DRUG INEFFECTIVE [None]
